FAERS Safety Report 18124765 (Version 2)
Quarter: 2020Q3

REPORT INFORMATION
  Report Type: Spontaneous
  Country: US (occurrence: US)
  Receive Date: 20200807
  Receipt Date: 20200811
  Transmission Date: 20201103
  Serious: Yes (Hospitalization)
  Sender: FDA-Public Use
  Company Number: US-ELI_LILLY_AND_COMPANY-US202008001204

PATIENT
  Sex: Female

DRUGS (2)
  1. BASAGLAR [Suspect]
     Active Substance: INSULIN GLARGINE
     Indication: TYPE 2 DIABETES MELLITUS
     Dosage: 42 U, EACH EVENING (NIGHTLY)
     Route: 065
     Dates: start: 202006
  2. BASAGLAR [Suspect]
     Active Substance: INSULIN GLARGINE
     Dosage: 42 U, EACH EVENING (NIGHTLY)
     Route: 065
     Dates: start: 202007

REACTIONS (2)
  - Eye disorder [Not Recovered/Not Resolved]
  - Feeling abnormal [Recovering/Resolving]
